FAERS Safety Report 14697823 (Version 1)
Quarter: 2018Q1

REPORT INFORMATION
  Report Type: Spontaneous
  Country: US (occurrence: US)
  Receive Date: 20180330
  Receipt Date: 20180330
  Transmission Date: 20180509
  Serious: No
  Sender: FDA-Public Use
  Company Number: US-SA-2018SA024486

PATIENT
  Age: 69 Year
  Sex: Female

DRUGS (2)
  1. ALLEGRA ALLERGY [Suspect]
     Active Substance: FEXOFENADINE HYDROCHLORIDE
     Indication: PRURITUS
     Route: 065
     Dates: start: 20180121
  2. ALLEGRA ALLERGY [Suspect]
     Active Substance: FEXOFENADINE HYDROCHLORIDE
     Indication: ECZEMA
     Route: 065
     Dates: start: 20180121

REACTIONS (5)
  - Off label use [Unknown]
  - Cough [Unknown]
  - Drug ineffective for unapproved indication [Unknown]
  - Rhinorrhoea [Unknown]
  - Expired product administered [Unknown]
